FAERS Safety Report 23197194 (Version 2)
Quarter: 2023Q4

REPORT INFORMATION
  Report Type: Spontaneous
  Country: US (occurrence: US)
  Receive Date: 20231117
  Receipt Date: 20231121
  Transmission Date: 20240110
  Serious: No
  Sender: FDA-Public Use
  Company Number: US-ANIPHARMA-2023-US-022858

PATIENT
  Sex: Female

DRUGS (1)
  1. VANCOMYCIN HYDROCHLORIDE [Suspect]
     Active Substance: VANCOMYCIN HYDROCHLORIDE
     Indication: Gastrointestinal infection
     Route: 065
     Dates: start: 20230721

REACTIONS (4)
  - Dizziness [Unknown]
  - Back pain [Unknown]
  - Abdominal pain lower [Unknown]
  - Hypoacusis [Unknown]

NARRATIVE: CASE EVENT DATE: 20230724
